FAERS Safety Report 5223830-5 (Version None)
Quarter: 2007Q1

REPORT INFORMATION
  Report Type: 
  Country: None (occurrence: None)
  Receive Date: 20070130
  Receipt Date: 20051206
  Transmission Date: 20070707
  Serious: No
  Sender: FDA-Public Use
  Company Number: US-BRISTOL-MYERS SQUIBB COMPANY-13205430

PATIENT
  Age: 5 Year
  Sex: Male

DRUGS (4)
  1. CEFZIL [Suspect]
     Indication: EAR INFECTION
     Dates: start: 20051202, end: 20051206
  2. CEFZIL [Suspect]
     Indication: SINUSITIS
     Dates: start: 20051202, end: 20051206
  3. ASCORBIC ACID [Concomitant]
  4. CALCIUM [Concomitant]

REACTIONS (3)
  - ABNORMAL BEHAVIOUR [None]
  - AGGRESSION [None]
  - SLEEP DISORDER [None]
